FAERS Safety Report 9697550 (Version 1)
Quarter: 2013Q4

REPORT INFORMATION
  Report Type: Spontaneous
  Country: HU (occurrence: HU)
  Receive Date: 20131120
  Receipt Date: 20131120
  Transmission Date: 20140711
  Serious: Yes (Hospitalization)
  Sender: FDA-Public Use
  Company Number: HU-VERTEX PHARMACEUTICALS INC-2013-011166

PATIENT
  Age: 60 Year
  Sex: Male

DRUGS (3)
  1. INCIVO [Suspect]
     Indication: HEPATITIS C
     Dosage: 1125 MG, BID
     Dates: start: 20130827, end: 20131102
  2. PEGINTRON [Suspect]
     Indication: HEPATITIS C
     Dates: start: 20130827, end: 20131104
  3. REBETOL [Suspect]
     Indication: HEPATITIS C
     Dates: start: 20130827, end: 20131104

REACTIONS (4)
  - Pyrexia [Recovered/Resolved]
  - Pruritus [Recovered/Resolved]
  - Urticaria [Recovered/Resolved]
  - Erythema multiforme [Recovered/Resolved]
